FAERS Safety Report 24269019 (Version 3)
Quarter: 2025Q3

REPORT INFORMATION
  Report Type: Spontaneous
  Country: MY (occurrence: MY)
  Receive Date: 20240830
  Receipt Date: 20250730
  Transmission Date: 20251020
  Serious: Yes (Death)
  Sender: PFIZER
  Company Number: MY-PFIZER INC-PV202400113684

PATIENT
  Age: 53 Year
  Sex: Female

DRUGS (1)
  1. XALKORI [Suspect]
     Active Substance: CRIZOTINIB
     Route: 048

REACTIONS (1)
  - Death [Fatal]

NARRATIVE: CASE EVENT DATE: 20240601
